FAERS Safety Report 7978249-0 (Version None)
Quarter: 2011Q4

REPORT INFORMATION
  Report Type: 
  Country: None (occurrence: None)
  Receive Date: 20111214
  Receipt Date: 20111212
  Transmission Date: 20120403
  Serious: Yes (Death, Other)
  Sender: FDA-Public Use
  Company Number: US-PFIZER INC-2011251538

PATIENT
  Sex: Male
  Weight: 104 kg

DRUGS (2)
  1. LORAZEPAM [Concomitant]
     Indication: ANXIETY
     Dosage: 0.5 MG, AS NEEDED
  2. GABAPENTIN [Suspect]
     Indication: NEUROPATHY PERIPHERAL
     Dosage: 300 MG, DAILY
     Dates: start: 20111011

REACTIONS (2)
  - MYOCARDIAL INFARCTION [None]
  - DYSKINESIA [None]
